FAERS Safety Report 11150853 (Version 1)
Quarter: 2015Q2

REPORT INFORMATION
  Report Type: Spontaneous
  Country: US (occurrence: US)
  Receive Date: 20150601
  Receipt Date: 20150601
  Transmission Date: 20150821
  Serious: Yes (Hospitalization)
  Sender: FDA-Public Use
  Company Number: US-TARO PHARMACEUTICALS U.S.A., INC-2015SUN01317

PATIENT
  Age: 64 Year
  Sex: Male

DRUGS (1)
  1. WARFARIN [Suspect]
     Active Substance: WARFARIN
     Indication: PRODUCT USED FOR UNKNOWN INDICATION
     Dosage: UNK
     Route: 065

REACTIONS (4)
  - Haematuria [Recovered/Resolved]
  - International normalised ratio increased [Recovered/Resolved]
  - Acute kidney injury [Recovered/Resolved]
  - Oliguria [Unknown]
